FAERS Safety Report 5763257-0 (Version None)
Quarter: 2008Q2

REPORT INFORMATION
  Report Type: 
  Country: None (occurrence: None)
  Receive Date: 20080604
  Receipt Date: 20080604
  Transmission Date: 20081010
  Serious: Yes (Life-Threatening)
  Sender: FDA-Public Use
  Company Number: None

PATIENT
  Age: 56 Year
  Sex: Female
  Weight: 56.6996 kg

DRUGS (4)
  1. LEVAQUIN [Suspect]
     Indication: EAR INFECTION
     Dosage: 1 TABLET 1 PER DAY PO CHANGED 2ND DAY
     Route: 048
     Dates: start: 20080425, end: 20080425
  2. LEVAQUIN [Suspect]
     Indication: URINARY TRACT INFECTION
     Dosage: 1 TABLET 1 PER DAY PO CHANGED 2ND DAY
     Route: 048
     Dates: start: 20080425, end: 20080425
  3. LEVAQUIN [Suspect]
     Indication: EAR INFECTION
     Dosage: 1 TABLET 1 PER DAY PO CHANGED 2ND DAY
     Route: 048
     Dates: start: 20080520, end: 20080520
  4. LEVAQUIN [Suspect]
     Indication: URINARY TRACT INFECTION
     Dosage: 1 TABLET 1 PER DAY PO CHANGED 2ND DAY
     Route: 048
     Dates: start: 20080520, end: 20080520

REACTIONS (8)
  - DYSPNOEA [None]
  - EAR PRURITUS [None]
  - ERYTHEMA [None]
  - HEADACHE [None]
  - MULTIPLE ALLERGIES [None]
  - PRURITUS [None]
  - URINARY TRACT INFECTION [None]
  - URTICARIA [None]
